FAERS Safety Report 9820998 (Version 2)
Quarter: 2014Q1

REPORT INFORMATION
  Report Type: Report from Study
  Country: BE (occurrence: BE)
  Receive Date: 20140116
  Receipt Date: 20140228
  Transmission Date: 20141002
  Serious: Yes (Hospitalization)
  Sender: FDA-Public Use
  Company Number: BE-BRISTOL-MYERS SQUIBB COMPANY-19987254

PATIENT
  Age: 78 Year
  Sex: Female

DRUGS (19)
  1. ELTHYRONE [Concomitant]
     Dosage: 1 DF = 75 MICROGRAM/J
  2. AZOPT [Concomitant]
     Dosage: 1 DF = I GTTE DANS CHEQUE CELL LE MATIN
  3. D-CURE [Concomitant]
     Dosage: 1 DF = IX/MOIS
  4. MOVICOL [Concomitant]
  5. CALCIUM CARBONATE [Concomitant]
     Dosage: 1 DF = 500 2SACHETS/J
  6. LOSFERRON [Concomitant]
     Dosage: 1 DF = 80MG 1X/J
  7. DUOVENT [Concomitant]
     Dosage: 1 DF = 1X/J
  8. VFEND [Concomitant]
     Dosage: 1 DF = KINE RESPI 5X/SEM
  9. ABATACEPT [Suspect]
     Indication: RHEUMATOID ARTHRITIS
     Route: 042
     Dates: start: 20090930
  10. LYSOMUCIL [Concomitant]
     Dosage: 1 DF = 600MG 1X/J
  11. ACLASTA [Concomitant]
  12. MEDROL [Concomitant]
     Dosage: 1 DF = 2 MG/J.
  13. SOTALEX [Concomitant]
     Dosage: 1 DF = 40MG 2X/J
  14. SINTROM [Concomitant]
     Dosage: 1 DF = 1 MG/J
  15. ASAFLOW [Concomitant]
     Dosage: 1 DF = 80MG 1CO.
  16. AMLOR [Concomitant]
     Dosage: 1 DF = 5MG 1CO.
  17. COVERSYL [Concomitant]
     Dosage: 1 DF = 10MG 1/2CO ET
  18. PERINDOPRIL [Concomitant]
     Dosage: 1 DF = 4MG 1X/JOUR
  19. LASIX [Concomitant]
     Dosage: 1 DF = 40 MG 1/2CO/1JOUR SUR 2.

REACTIONS (1)
  - Oxygen saturation [Unknown]
